FAERS Safety Report 21970187 (Version 3)
Quarter: 2023Q2

REPORT INFORMATION
  Report Type: Other
  Country: CA (occurrence: CA)
  Receive Date: 20230209
  Receipt Date: 20230518
  Transmission Date: 20230722
  Serious: Yes (Other)
  Sender: FDA-Public Use
  Company Number: CA-CELLTRION INC.-2023CA002304

PATIENT

DRUGS (24)
  1. RITUXIMAB [Suspect]
     Active Substance: RITUXIMAB
     Indication: Rheumatoid arthritis
     Dosage: 1000 MILLIGRAM
     Route: 042
  2. RITUXIMAB [Suspect]
     Active Substance: RITUXIMAB
     Dosage: 1000 MILLIGRAM
     Route: 042
  3. LEFLUNOMIDE [Suspect]
     Active Substance: LEFLUNOMIDE
     Indication: Product used for unknown indication
     Route: 065
  4. LEFLUNOMIDE [Suspect]
     Active Substance: LEFLUNOMIDE
     Indication: Product used for unknown indication
     Route: 065
  5. METHOTREXATE [Suspect]
     Active Substance: METHOTREXATE
     Indication: Product used for unknown indication
     Route: 065
  6. ACETAMINOPHEN [Concomitant]
     Active Substance: ACETAMINOPHEN
     Dosage: 650 MILLIGRAM, AS REQUIRED
     Route: 048
  7. ACETAMINOPHEN [Concomitant]
     Active Substance: ACETAMINOPHEN
     Dosage: UNK
  8. ACETAMINOPHEN [Concomitant]
     Active Substance: ACETAMINOPHEN
     Dosage: 650 MILLIGRAM
     Route: 048
  9. DIPHENHYDRAMINE HYDROCHLORIDE [Concomitant]
     Active Substance: DIPHENHYDRAMINE HYDROCHLORIDE
     Dosage: 50 MILLIGRAM
     Route: 048
  10. IBUPROFEN [Concomitant]
     Active Substance: IBUPROFEN
     Indication: Pain
  11. IBUPROFEN [Concomitant]
     Active Substance: IBUPROFEN
     Indication: Arthralgia
  12. IBUPROFEN [Concomitant]
     Active Substance: IBUPROFEN
     Indication: Pain
     Dosage: 600 MILLIGRAM
     Route: 065
  13. IBUPROFEN [Concomitant]
     Active Substance: IBUPROFEN
     Indication: Arthralgia
     Dosage: 400 MILLIGRAM, 2 EVERY 1 DAYS
     Route: 048
  14. IPRATROPIUM [Concomitant]
     Active Substance: IPRATROPIUM
     Dosage: 20 MILLIGRAM, 4 EVERY 1 DAYS
     Route: 065
  15. METFORMIN [Concomitant]
     Active Substance: METFORMIN HYDROCHLORIDE
     Indication: Hyperglycaemia
     Dosage: 500 MILLIGRAM, 2 EVERY 1 DAYS
     Route: 065
  16. METHYLPREDNISOLONE [Concomitant]
     Active Substance: METHYLPREDNISOLONE
     Dosage: 100 MILLIGRAM
     Route: 042
  17. MOXIFLOXACIN [Concomitant]
     Active Substance: MOXIFLOXACIN
     Dosage: 400 MILLIGRAM
     Route: 048
  18. NAPROXEN [Concomitant]
     Active Substance: NAPROXEN
     Indication: Pain
  19. PIPERACILLIN SODIUM\TAZOBACTAM SODIUM [Concomitant]
     Active Substance: PIPERACILLIN SODIUM\TAZOBACTAM SODIUM
  20. PREDNISONE [Concomitant]
     Active Substance: PREDNISONE
  21. PREDNISONE [Concomitant]
     Active Substance: PREDNISONE
     Dosage: 40 MILLIGRAM, 1 EVERY 1 DAYS
     Route: 065
  22. ALBUTEROL [Concomitant]
     Active Substance: ALBUTEROL
     Dosage: 100 MILLIGRAM
     Route: 065
  23. ALBUTEROL [Concomitant]
     Active Substance: ALBUTEROL
     Dosage: 100 MILLIGRAM, 4 EVERY 1 DAYS
     Route: 065
  24. XELJANZ [Concomitant]
     Active Substance: TOFACITINIB CITRATE

REACTIONS (12)
  - Aortic aneurysm [Not Recovered/Not Resolved]
  - Blood pressure diastolic increased [Not Recovered/Not Resolved]
  - Hepatic enzyme increased [Not Recovered/Not Resolved]
  - Hyperglycaemia [Not Recovered/Not Resolved]
  - Joint swelling [Not Recovered/Not Resolved]
  - Pulmonary fibrosis [Not Recovered/Not Resolved]
  - Rheumatoid arthritis [Not Recovered/Not Resolved]
  - Tenosynovitis [Not Recovered/Not Resolved]
  - Arthralgia [Not Recovered/Not Resolved]
  - COVID-19 [Not Recovered/Not Resolved]
  - Pneumonia [Not Recovered/Not Resolved]
  - Respiratory failure [Not Recovered/Not Resolved]
